FAERS Safety Report 7843169-9 (Version None)
Quarter: 2011Q4

REPORT INFORMATION
  Report Type: 
  Country: None (occurrence: None)
  Receive Date: 20111024
  Receipt Date: 20111024
  Transmission Date: 20120403
  Serious: Yes (Disabling)
  Sender: FDA-Public Use
  Company Number: None

PATIENT
  Age: 83 Year
  Sex: Female
  Weight: 55.3 kg

DRUGS (5)
  1. LISINOPRIL [Concomitant]
  2. BENICAR [Concomitant]
  3. ENOXAPARIN SODIUM [Suspect]
     Dosage: 30MG ONE DOSE SUBCUT
     Route: 058
     Dates: start: 20111007
  4. PRADAXA [Suspect]
     Indication: ATRIAL FIBRILLATION
     Dosage: 150MG BID PO
     Route: 048
     Dates: start: 20111007
  5. AMLODIPINE [Concomitant]

REACTIONS (7)
  - INAPPROPRIATE ANTIDIURETIC HORMONE SECRETION [None]
  - ACTIVATED PARTIAL THROMBOPLASTIN TIME PROLONGED [None]
  - FALL [None]
  - HYPONATRAEMIA [None]
  - COMPRESSION FRACTURE [None]
  - INTERNATIONAL NORMALISED RATIO INCREASED [None]
  - LUMBAR VERTEBRAL FRACTURE [None]
